FAERS Safety Report 14147207 (Version 1)
Quarter: 2017Q4

REPORT INFORMATION
  Report Type: Spontaneous
  Country: US (occurrence: US)
  Receive Date: 20171101
  Receipt Date: 20171101
  Transmission Date: 20180321
  Serious: Yes (Death, Other)
  Sender: FDA-Public Use
  Company Number: US-ROCHE-2013719

PATIENT
  Age: 66 Year

DRUGS (2)
  1. RITUXAN [Suspect]
     Active Substance: RITUXIMAB
     Indication: PRODUCT USED FOR UNKNOWN INDICATION
     Route: 065
     Dates: start: 201605
  2. PLEGRIDY [Concomitant]
     Active Substance: PEGINTERFERON BETA-1A
     Indication: MULTIPLE SCLEROSIS
     Dosage: SOLUTION FOR INJECTION IN PRE-FILLED PEN
     Route: 065
     Dates: end: 201605

REACTIONS (6)
  - Regurgitation [Fatal]
  - Chest discomfort [Fatal]
  - Oesophageal obstruction [Fatal]
  - Oesophageal carcinoma [Fatal]
  - Weight decreased [Fatal]
  - Transitional cell carcinoma [Unknown]

NARRATIVE: CASE EVENT DATE: 20160726
